FAERS Safety Report 8305555-2 (Version None)
Quarter: 2012Q2

REPORT INFORMATION
  Report Type: 
  Country: None (occurrence: None)
  Receive Date: 20120423
  Receipt Date: 20120412
  Transmission Date: 20120825
  Serious: Yes (Hospitalization)
  Sender: FDA-Public Use
  Company Number: US-MERCK-1203USA00246

PATIENT
  Sex: Female

DRUGS (3)
  1. WELLBUTRIN [Suspect]
     Indication: DEPRESSION
     Dosage: 150
     Route: 065
     Dates: start: 20080101, end: 20111201
  2. PRISTIQ [Suspect]
     Indication: DEPRESSION
     Route: 048
     Dates: end: 20111201
  3. MAXALT [Suspect]
     Indication: MIGRAINE
     Route: 048

REACTIONS (1)
  - MUSCLE TWITCHING [None]
